FAERS Safety Report 9448841 (Version 1)
Quarter: 2013Q3

REPORT INFORMATION
  Report Type: Report from Study
  Country: DE (occurrence: DE)
  Receive Date: 20130808
  Receipt Date: 20130808
  Transmission Date: 20140515
  Serious: Yes (Hospitalization)
  Sender: FDA-Public Use
  Company Number: DE-UCBSA-089750

PATIENT
  Age: 78 Year
  Sex: Male
  Weight: 106 kg

DRUGS (16)
  1. VIMPAT [Suspect]
     Indication: PARTIAL SEIZURES
     Dosage: ONCE IN THE EVENING
     Dates: start: 20121023, end: 20121029
  2. VIMPAT [Suspect]
     Indication: PARTIAL SEIZURES
     Dosage: ONCE IN THE EVENING
     Dates: start: 20121030, end: 20121106
  3. VIMPAT [Suspect]
     Indication: PARTIAL SEIZURES
     Dosage: ONCE IN THE EVENING (100 MG) AND MORNING( 50 MG)
     Dates: start: 20121107, end: 20121113
  4. VIMPAT [Suspect]
     Indication: PARTIAL SEIZURES
     Dosage: TWICE DAILY
     Dates: start: 20121114, end: 20121129
  5. VIMPAT [Suspect]
     Indication: PARTIAL SEIZURES
     Dosage: 100 MG IN THE MORNING+ 150 MG IN THE EVENING
     Dates: start: 20121130, end: 20121205
  6. VIMPAT [Suspect]
     Indication: PARTIAL SEIZURES
     Dosage: MORNING AND EVENING
     Dates: start: 20121206, end: 20121212
  7. VIMPAT [Suspect]
     Indication: PARTIAL SEIZURES
     Dosage: 150 MG IN THE MORNING AND 200 MG IN THE EVENING
     Dates: start: 20121213, end: 20121219
  8. VIMPAT [Suspect]
     Indication: PARTIAL SEIZURES
     Dosage: MORNING AND EVENING
     Dates: start: 20121220, end: 20130307
  9. ASS 10 [Concomitant]
     Indication: THROMBOSIS PROPHYLAXIS
     Dosage: 100 MG
     Dates: start: 20121019
  10. BISOPROLOL [Concomitant]
     Indication: HYPERTENSION
     Dosage: 2.5 MG
     Dates: start: 20121019
  11. RAMIPRIL [Concomitant]
     Indication: HYPERTENSION
     Dosage: 5 MG
     Dates: start: 20121019
  12. LEVETIRACETAM [Concomitant]
     Indication: EPILEPSY
     Dosage: MORNING AND NIGHT
     Dates: start: 20121019, end: 20121105
  13. LEVETIRACETAM [Concomitant]
     Indication: EPILEPSY
     Dates: start: 20121106, end: 20130116
  14. LEVETIRACETAM [Concomitant]
     Indication: EPILEPSY
     Dosage: ONCE IN THE EVENING
     Dates: start: 20130117, end: 20130202
  15. LEVETIRACETAM [Concomitant]
     Indication: EPILEPSY
     Dates: start: 20130206, end: 20130208
  16. LEVETIRACETAM [Concomitant]
     Indication: EPILEPSY
     Dosage: IN THE EVENING
     Dates: start: 20130209

REACTIONS (3)
  - Rib fracture [Recovered/Resolved]
  - Fall [Recovered/Resolved]
  - Dizziness [Recovered/Resolved]
